FAERS Safety Report 16877697 (Version 1)
Quarter: 2019Q4

REPORT INFORMATION
  Report Type: Spontaneous
  Country: US (occurrence: US)
  Receive Date: 20191002
  Receipt Date: 20191002
  Transmission Date: 20200122
  Serious: Yes (Hospitalization)
  Sender: FDA-Public Use
  Company Number: None

PATIENT
  Age: 66 Year
  Sex: Male

DRUGS (18)
  1. FLOMAX CAP 0.4 MG [Concomitant]
  2. DULOXETINE CAP 60 MG [Concomitant]
  3. ATORVASTATIN TAB 40 MG [Concomitant]
     Active Substance: ATORVASTATIN
  4. MECLIZINE CHW 25 MG [Concomitant]
  5. VALIUM TAB 5 MG [Concomitant]
  6. KEPPRA TAB 250 MG [Concomitant]
  7. CYMBALTA CAP 30 MG [Concomitant]
  8. LOPID TAB 600 MG [Concomitant]
  9. D3-50 CAP 50000 UNIT [Concomitant]
  10. VITAMIN B12 [Concomitant]
     Active Substance: CYANOCOBALAMIN
  11. GEMIBROZIL TAB 600 MG [Concomitant]
  12. CANASA SUP 1000 MG [Concomitant]
  13. HUMIRA [Suspect]
     Active Substance: ADALIMUMAB
     Indication: PROCTITIS ULCERATIVE
     Dosage: ?          OTHER FREQUENCY:WEEKLY;?
     Route: 058
     Dates: start: 20151019
  14. SODIUM BICAR TAB 325 MG [Concomitant]
  15. MAG OXIDE TAB 400 MG [Concomitant]
  16. PROTONIX TAB 40 MG [Concomitant]
  17. CARVEDILOL TAB 6.25 MG [Concomitant]
  18. VALSARTAN TAB 320 MG [Concomitant]
     Active Substance: VALSARTAN

REACTIONS (2)
  - Diarrhoea [None]
  - Dehydration [None]
